FAERS Safety Report 5092542-3 (Version None)
Quarter: 2006Q3

REPORT INFORMATION
  Report Type: 
  Country: None (occurrence: None)
  Receive Date: 20060828
  Receipt Date: 20060816
  Transmission Date: 20061208
  Serious: Yes (Other)
  Sender: FDA-Public Use
  Company Number: 2006100326

PATIENT
  Sex: Female

DRUGS (2)
  1. LIPITOR [Suspect]
     Indication: CEREBROVASCULAR ACCIDENT
     Dosage: 10 MG
     Dates: start: 20060401
  2. FLEXERIL [Concomitant]

REACTIONS (5)
  - PRURITUS [None]
  - RASH GENERALISED [None]
  - SECRETION DISCHARGE [None]
  - SKIN DISCOLOURATION [None]
  - URTICARIA [None]
